FAERS Safety Report 16785276 (Version 1)
Quarter: 2019Q3

REPORT INFORMATION
  Report Type: Report from Study
  Country: US (occurrence: US)
  Receive Date: 20190909
  Receipt Date: 20190909
  Transmission Date: 20191005
  Serious: Yes (Life-Threatening)
  Sender: FDA-Public Use
  Company Number: US-RECRO GAINESVILLE LLC-REPH-2019-000172

PATIENT
  Age: 64 Year
  Sex: Male

DRUGS (5)
  1. THEOPHYLLINE [Concomitant]
     Active Substance: THEOPHYLLINE ANHYDROUS
     Dosage: UNK
  2. PYRIDOXINE [Concomitant]
     Active Substance: PYRIDOXINE
     Dosage: UNK
  3. VERAPAMIL HYDROCHLORIDE SUSTAINED RELEASE [Suspect]
     Active Substance: VERAPAMIL HYDROCHLORIDE
     Indication: ATRIAL TACHYCARDIA
     Dosage: 80 MILLIGRAM, ONE TIME DOSE
     Route: 048
  4. ISONIAZID. [Concomitant]
     Active Substance: ISONIAZID
     Dosage: UNK
  5. METAPROTERENOL                     /00000201/ [Concomitant]
     Dosage: UNK
     Route: 055

REACTIONS (2)
  - Off label use [None]
  - Ventricular dysfunction [Recovered/Resolved]
